FAERS Safety Report 21281091 (Version 1)
Quarter: 2022Q3

REPORT INFORMATION
  Report Type: Spontaneous
  Country: US (occurrence: None)
  Receive Date: 20220831
  Receipt Date: 20220831
  Transmission Date: 20221026
  Serious: No
  Sender: FDA-Public Use
  Company Number: None

PATIENT
  Age: 84 Year
  Sex: Male

DRUGS (1)
  1. COMETRIQ [Suspect]
     Active Substance: CABOZANTINIB S-MALATE
     Indication: Thyroid cancer
     Dosage: FREQUENCY : DAILY;?
     Route: 048
     Dates: start: 20220804

REACTIONS (9)
  - Metastases to central nervous system [None]
  - Metastases to lung [None]
  - Metastases to abdominal cavity [None]
  - Gastrooesophageal reflux disease [None]
  - Hypertension [None]
  - Hyperlipidaemia [None]
  - Dehydration [None]
  - Nausea [None]
  - Diarrhoea [None]

NARRATIVE: CASE EVENT DATE: 20220820
